FAERS Safety Report 20077292 (Version 1)
Quarter: 2021Q4

REPORT INFORMATION
  Report Type: Spontaneous
  Country: US (occurrence: US)
  Receive Date: 20211116
  Receipt Date: 20211116
  Transmission Date: 20220303
  Serious: No
  Sender: FDA-Public Use
  Company Number: US-KALA PHARAMACEUTICALS-2021KLA00107

PATIENT
  Sex: Male

DRUGS (1)
  1. EYSUVIS [Suspect]
     Active Substance: LOTEPREDNOL ETABONATE
     Indication: Dry eye
     Dosage: UNK, 2X/DAY IN THE MORNING AND EVENING
     Route: 047

REACTIONS (2)
  - Visual impairment [Recovered/Resolved]
  - Eye irritation [Recovered/Resolved]
